FAERS Safety Report 9669043 (Version 2)
Quarter: 2013Q4

REPORT INFORMATION
  Report Type: Spontaneous
  Country: US (occurrence: US)
  Receive Date: 20131105
  Receipt Date: 20131108
  Transmission Date: 20140711
  Serious: Yes (Other)
  Sender: FDA-Public Use
  Company Number: US-PFIZER INC-2013313274

PATIENT
  Age: 67 Year
  Sex: Female

DRUGS (15)
  1. XELJANZ [Suspect]
     Indication: RHEUMATOID ARTHRITIS
     Dosage: 5 MG, 2X/DAY
     Route: 048
  2. COLACE [Concomitant]
     Dosage: UNK
  3. CALCIUM 500 [Concomitant]
     Dosage: UNK
  4. LABETALOL HYDROCHLORIDE [Concomitant]
     Dosage: UNK
  5. LISINOPRIL [Concomitant]
     Dosage: UNK
  6. FERROUS SULFATE [Concomitant]
     Dosage: UNK
  7. PROCET /USA/ [Concomitant]
     Dosage: UNK
  8. OXYCODONE HYDROCHLORIDE [Concomitant]
     Dosage: UNK
  9. REGLAN [Concomitant]
     Dosage: UNK
  10. PREDNISONE [Concomitant]
     Dosage: UNK
  11. EFEXOR XR [Concomitant]
     Dosage: UNK
  12. PROPRANOLOL HYDROCHLORIDE [Concomitant]
     Dosage: UNK
  13. NEXIUM [Concomitant]
     Dosage: UNK
  14. PLAQUENIL [Concomitant]
     Dosage: UNK
  15. GABAPENTIN [Concomitant]
     Dosage: UNK

REACTIONS (5)
  - Foot fracture [Unknown]
  - Hand fracture [Unknown]
  - Abdominal discomfort [Not Recovered/Not Resolved]
  - Diarrhoea [Unknown]
  - Flatulence [Unknown]
